FAERS Safety Report 9339174 (Version 3)
Quarter: 2013Q3

REPORT INFORMATION
  Report Type: Spontaneous
  Country: SI (occurrence: SI)
  Receive Date: 20130610
  Receipt Date: 20130708
  Transmission Date: 20140515
  Serious: Yes (Other)
  Sender: FDA-Public Use
  Company Number: SI-BAYER-2013-067415

PATIENT
  Age: 51 Year
  Sex: Female
  Weight: 69.84 kg

DRUGS (3)
  1. MIRENA [Suspect]
     Indication: CONTRACEPTION
     Dosage: 20 MCG/24HR, CONT
     Route: 015
     Dates: start: 20080606, end: 20130508
  2. MIRENA [Suspect]
     Indication: MENORRHAGIA
  3. CANESTEN [Concomitant]

REACTIONS (2)
  - Endometrial cancer [None]
  - Uterine haemorrhage [None]
